FAERS Safety Report 9886373 (Version 1)
Quarter: 2014Q1

REPORT INFORMATION
  Report Type: Spontaneous
  Country: ES (occurrence: ES)
  Receive Date: 20140210
  Receipt Date: 20140210
  Transmission Date: 20141002
  Serious: Yes (Other)
  Sender: FDA-Public Use
  Company Number: ES-PFIZER INC-2014036317

PATIENT
  Age: 78 Year
  Sex: Male

DRUGS (3)
  1. XALATAN [Suspect]
     Dosage: 1 DROP, 1X/DAY
     Route: 047
     Dates: start: 2013, end: 2013
  2. CRESTOR [Concomitant]
     Dosage: 5 MG, 1X/DAY
  3. SERC [Concomitant]
     Dosage: 16 MG, 2X/DAY

REACTIONS (5)
  - Headache [Recovered/Resolved]
  - Vertigo [Recovered/Resolved]
  - Dizziness [Recovered/Resolved]
  - Blindness [Recovered/Resolved]
  - Fall [Recovered/Resolved]
